FAERS Safety Report 7028534-4 (Version None)
Quarter: 2010Q4

REPORT INFORMATION
  Report Type: 
  Country: None (occurrence: None)
  Receive Date: 20101005
  Receipt Date: 20100926
  Transmission Date: 20110411
  Serious: No
  Sender: FDA-Public Use
  Company Number: KR-JNJFOC-20100902131

PATIENT
  Age: 46 Year
  Sex: Male

DRUGS (3)
  1. DURAGESIC-100 [Suspect]
     Indication: PAIN MANAGEMENT
     Dosage: HALF A PATCH (12.5 UG/HR)
     Route: 062
  2. MOTILIUM [Concomitant]
     Indication: DYSPEPSIA
     Dosage: 10MG TABLETS/3 TIMES A DAY
     Route: 048
  3. MOTILIUM [Concomitant]
     Indication: ANTIEMETIC SUPPORTIVE CARE
     Dosage: 10MG TABLETS/3 TIMES A DAY
     Route: 048

REACTIONS (3)
  - ABDOMINAL DISCOMFORT [None]
  - DRUG ADMINISTRATION ERROR [None]
  - PARAESTHESIA [None]
